FAERS Safety Report 9267221 (Version 1)
Quarter: 2013Q2

REPORT INFORMATION
  Report Type: Spontaneous
  Country: BR (occurrence: BR)
  Receive Date: 20130502
  Receipt Date: 20130502
  Transmission Date: 20140414
  Serious: Yes (Other)
  Sender: FDA-Public Use
  Company Number: PHHY2013BR041859

PATIENT
  Sex: Female
  Weight: 85 kg

DRUGS (11)
  1. CATAFLAM [Suspect]
     Dosage: UNK UKN, UNK
  2. DIOVAN [Suspect]
     Indication: HYPERTENSION
     Dosage: UNK UKN, UNK
  3. VERAPAMIL [Suspect]
     Indication: HYPERTENSION
     Dosage: UNK UKN, UNK
  4. METHOTREXATE [Suspect]
     Indication: RHEUMATOID ARTHRITIS
     Dosage: UNK UKN, UNK
  5. DIOSMIN+HESPERIDIN [Suspect]
     Indication: HYPERTENSION
     Dosage: UNK UKN, UNK
  6. ACTEMRA [Suspect]
     Indication: RHEUMATOID ARTHRITIS
     Dosage: UNK UKN, UNK
     Route: 042
     Dates: start: 201210, end: 20130408
  7. SYNTHROID [Suspect]
     Indication: HYPOTHYROIDISM
     Dosage: UNK UKN, UNK
  8. DAFLON (DIOSMIN) [Suspect]
     Indication: ANGIOPATHY
     Dosage: UNK UKN, UNK
  9. FLANCOX [Suspect]
     Indication: RHEUMATOID ARTHRITIS
     Dosage: UNK UKN, UNK
  10. OMEGA 3 [Suspect]
     Dosage: UNK UKN, UNK
  11. ULTRACET [Suspect]
     Indication: PAIN
     Dosage: UNK UKN, UNK

REACTIONS (7)
  - Rheumatoid arthritis [Unknown]
  - Pulmonary oedema [Unknown]
  - Hypothyroidism [Unknown]
  - Embolism [Unknown]
  - Hypertension [Unknown]
  - Drug hypersensitivity [Unknown]
  - Pain [Unknown]
